FAERS Safety Report 6406184-8 (Version None)
Quarter: 2009Q4

REPORT INFORMATION
  Report Type: 
  Country: None (occurrence: None)
  Receive Date: 20091014
  Receipt Date: 20090930
  Transmission Date: 20100525
  Serious: Yes (Hospitalization)
  Sender: FDA-Public Use
  Company Number: 2009AC000030

PATIENT
  Age: 79 Year
  Sex: Female

DRUGS (29)
  1. DIGOXIN [Suspect]
     Indication: CARDIAC MURMUR
     Dosage: 0.125 MG;QD; PO
     Route: 048
  2. DIGOXIN [Suspect]
     Dosage: 0.25 MG; PO
     Route: 048
  3. COREG [Concomitant]
  4. ASPIRIN [Concomitant]
  5. SYNTHROID [Concomitant]
  6. PLAVIX [Concomitant]
  7. COLACE [Concomitant]
  8. LACTULOSE [Concomitant]
  9. COUMADIN [Concomitant]
  10. LEVOTHYROXINE SODIUM [Concomitant]
  11. DETROL [Concomitant]
  12. TRIGOSAMINE [Concomitant]
  13. BENICAR [Concomitant]
  14. LOTREL [Concomitant]
  15. LASIX [Concomitant]
  16. LOPRESSOR [Concomitant]
  17. STOOL SOFTNER (UNSPECIFIED) [Concomitant]
  18. CELEBREX [Concomitant]
  19. CYANOCOBALAMIN [Concomitant]
  20. PROPOXYPHENE HCL AND ACETAMINOPHEN [Concomitant]
  21. CARVEDILOL [Concomitant]
  22. HYDROCODONE BITARTRATE AND ACETAMINOPHEN [Concomitant]
  23. DOXYCYCLINE [Concomitant]
  24. AZITHROMYCIN [Concomitant]
  25. TRIAMTERENE AND HYDROCHLOROTHIAZIDE [Concomitant]
  26. FUROSEMIDE [Concomitant]
  27. SODIUM BICARBONATE IN PLASTIC CONTAINER [Concomitant]
  28. MECLIZINE [Concomitant]
  29. CIPROFLOXACIN HYDROCHLORIDE [Concomitant]

REACTIONS (27)
  - ACUTE PRERENAL FAILURE [None]
  - ANAEMIA [None]
  - ANURIA [None]
  - ATRIAL FIBRILLATION [None]
  - BALANCE DISORDER [None]
  - CARDIAC FAILURE CONGESTIVE [None]
  - CARDIOMEGALY [None]
  - COR PULMONALE [None]
  - DEHYDRATION [None]
  - DIZZINESS [None]
  - EPISTAXIS [None]
  - FEELING COLD [None]
  - GASTROENTERITIS [None]
  - HEART RATE IRREGULAR [None]
  - HYPERTENSION [None]
  - HYPOTENSION [None]
  - MULTIPLE MYELOMA [None]
  - OEDEMA PERIPHERAL [None]
  - PALPITATIONS [None]
  - PRESYNCOPE [None]
  - RENAL FAILURE ACUTE [None]
  - TACHYCARDIA [None]
  - THERAPEUTIC AGENT TOXICITY [None]
  - THROMBOCYTOPENIA [None]
  - THROMBOCYTOSIS [None]
  - TREMOR [None]
  - URINARY TRACT INFECTION [None]
